FAERS Safety Report 8960798 (Version 1)
Quarter: 2012Q4

REPORT INFORMATION
  Report Type: Spontaneous
  Country: US (occurrence: None)
  Receive Date: 20121211
  Receipt Date: 20121211
  Transmission Date: 20130627
  Serious: Yes (Death, Hospitalization)
  Sender: FDA-Public Use
  Company Number: None

PATIENT
  Age: 64 Year
  Sex: Male
  Weight: 90.4 kg

DRUGS (2)
  1. DECITABINE [Suspect]
     Indication: MDS
     Dates: start: 20100907, end: 20110730
  2. BENSZOPRIL [Concomitant]

REACTIONS (5)
  - Haemodynamic instability [None]
  - Respiratory failure [None]
  - Metabolic acidosis [None]
  - Septic shock [None]
  - Multi-organ disorder [None]
